FAERS Safety Report 5044816-X (Version None)
Quarter: 2006Q3

REPORT INFORMATION
  Report Type: 
  Country: None (occurrence: None)
  Receive Date: 20060707
  Receipt Date: 20060424
  Transmission Date: 20061208
  Serious: Yes (Disabling)
  Sender: FDA-Public Use
  Company Number: 2006SE02339

PATIENT
  Age: 25636 Day
  Sex: Male
  Weight: 67 kg

DRUGS (13)
  1. BLOPRESS [Suspect]
     Indication: HYPERTENSION
     Route: 048
     Dates: start: 20030225, end: 20030304
  2. BLOPRESS [Suspect]
     Route: 048
     Dates: start: 20030325, end: 20041220
  3. BLOPRESS [Suspect]
     Route: 048
     Dates: start: 20041221, end: 20051114
  4. BLOPRESS [Suspect]
     Route: 048
     Dates: start: 20051115
  5. AMARYL [Concomitant]
     Indication: DIABETES MELLITUS NON-INSULIN-DEPENDENT
     Route: 048
     Dates: start: 20021024, end: 20040112
  6. TORSEMIDE [Concomitant]
     Indication: OEDEMA
     Route: 048
     Dates: start: 20030325, end: 20040120
  7. ALLOPURINOL [Concomitant]
     Indication: HYPERURICAEMIA
     Route: 048
     Dates: start: 20031018, end: 20040323
  8. PLETAL [Concomitant]
     Indication: THROMBOTIC STROKE
     Route: 048
     Dates: start: 20040120
  9. LASIX [Concomitant]
     Indication: OEDEMA
     Route: 048
     Dates: start: 20040120
  10. ALLELOCK [Concomitant]
     Indication: DRUG ERUPTION
     Route: 048
     Dates: start: 20040323, end: 20040417
  11. URINORM [Concomitant]
     Indication: GOUT
     Route: 048
     Dates: start: 20040713
  12. URALYT [Concomitant]
     Indication: GOUT
     Route: 048
     Dates: start: 20040713
  13. CONIEL [Concomitant]
     Indication: HYPERTENSION
     Route: 048
     Dates: start: 20051129

REACTIONS (1)
  - DIABETIC NEPHROPATHY [None]
